FAERS Safety Report 9731549 (Version 2)
Quarter: 2014Q1

REPORT INFORMATION
  Report Type: Spontaneous
  Country: VE (occurrence: VE)
  Receive Date: 20131203
  Receipt Date: 20140207
  Transmission Date: 20141002
  Serious: Yes (Hospitalization, Other)
  Sender: FDA-Public Use
  Company Number: VE-ABBVIE-13P-178-1174258-00

PATIENT
  Age: 12 Year
  Sex: Male

DRUGS (8)
  1. ULTANE [Suspect]
     Indication: INDUCTION OF ANAESTHESIA
     Dosage: ONE TIME
     Route: 055
     Dates: start: 20131121, end: 20131121
  2. PROPOFOL [Concomitant]
     Indication: ANAESTHESIA
     Dosage: ONE TIME
     Route: 042
     Dates: start: 20131121, end: 20131121
  3. ESMERON [Concomitant]
     Indication: INDUCTION OF ANAESTHESIA
     Dosage: ONE TIME
     Route: 042
     Dates: start: 20131121, end: 20131121
  4. RANITIDINA [Concomitant]
     Indication: GASTRIC DISORDER
     Dosage: ONE TIME
     Route: 042
     Dates: start: 20131121, end: 20131121
  5. RANITIDINA [Concomitant]
     Indication: PROPHYLAXIS
  6. METOCLOPRAMIDA [Concomitant]
     Indication: NAUSEA
     Dosage: ONE TIME
     Route: 042
     Dates: start: 20131121, end: 20131121
  7. METOCLOPRAMIDA [Concomitant]
     Indication: VOMITING
  8. KETOPROFENO [Concomitant]
     Indication: ANALGESIC THERAPY
     Dosage: ONE TIME
     Route: 042
     Dates: start: 20131121, end: 20131121

REACTIONS (7)
  - Cerebral ischaemia [Not Recovered/Not Resolved]
  - Mobility decreased [Not Recovered/Not Resolved]
  - Hypertensive crisis [Not Recovered/Not Resolved]
  - Pulmonary oedema [Not Recovered/Not Resolved]
  - Lethargy [Not Recovered/Not Resolved]
  - Staring [Not Recovered/Not Resolved]
  - Central nervous system necrosis [Unknown]
